FAERS Safety Report 7955024-4 (Version None)
Quarter: 2011Q4

REPORT INFORMATION
  Report Type: 
  Country: None (occurrence: None)
  Receive Date: 20111202
  Receipt Date: 20111126
  Transmission Date: 20120403
  Serious: Yes (Hospitalization)
  Sender: FDA-Public Use
  Company Number: CH-ABBOTT-11P-151-0857860-00

PATIENT
  Sex: Male
  Weight: 71 kg

DRUGS (2)
  1. HUMIRA [Suspect]
     Indication: PSORIASIS
     Dosage: 1 IN 2 WEEKS, HUMIRA MONOTHERAPY
     Dates: start: 20110329
  2. METOPROLOL TARTRATE [Concomitant]
     Indication: PRODUCT USED FOR UNKNOWN INDICATION
     Dates: start: 20000101

REACTIONS (2)
  - CORONARY ARTERY OCCLUSION [None]
  - ACUTE MYOCARDIAL INFARCTION [None]
